FAERS Safety Report 12568729 (Version 1)
Quarter: 2016Q3

REPORT INFORMATION
  Report Type: Spontaneous
  Country: US (occurrence: None)
  Receive Date: 20160718
  Receipt Date: 20160718
  Transmission Date: 20161109
  Serious: Yes (Hospitalization)
  Sender: FDA-Public Use
  Company Number: None

PATIENT
  Age: 40 Year
  Sex: Male
  Weight: 53.52 kg

DRUGS (1)
  1. DOCUSATE SODIUM, 50MG5ML HI-TECH [Suspect]
     Active Substance: DOCUSATE SODIUM
     Indication: CONSTIPATION
     Dosage: 100 MG BID ENTERAL, GASTROINTESTINAL TUBE
     Dates: start: 20130101, end: 20160714

REACTIONS (2)
  - Sepsis [None]
  - Respiratory tract infection [None]

NARRATIVE: CASE EVENT DATE: 20160304
